FAERS Safety Report 24745169 (Version 2)
Quarter: 2024Q4

REPORT INFORMATION
  Report Type: Spontaneous
  Country: US (occurrence: US)
  Receive Date: 20241217
  Receipt Date: 20241227
  Transmission Date: 20250115
  Serious: No
  Sender: MILLICENT HOLDINGS
  Company Number: US-Millicent Holdings Ltd.-MILL20241301

PATIENT
  Age: 44 Year

DRUGS (3)
  1. FEMRING [Suspect]
     Active Substance: ESTRADIOL ACETATE
     Indication: Menopausal symptoms
     Dosage: 0.10 MG/DAY
     Route: 067
  2. FEMRING [Suspect]
     Active Substance: ESTRADIOL ACETATE
     Indication: Hormone replacement therapy
  3. PROGESTERONE [Concomitant]
     Active Substance: PROGESTERONE
     Indication: Hormone replacement therapy
     Dosage: 200 MG
     Route: 065

REACTIONS (7)
  - Product dose omission issue [Unknown]
  - Breast tenderness [Unknown]
  - Nipple pain [Unknown]
  - Night sweats [Unknown]
  - Acne [Unknown]
  - Intermenstrual bleeding [Unknown]
  - Device expulsion [Unknown]

NARRATIVE: CASE EVENT DATE: 20241201
